FAERS Safety Report 7767145-X (Version None)
Quarter: 2011Q3

REPORT INFORMATION
  Report Type: 
  Country: None (occurrence: None)
  Receive Date: 20110922
  Receipt Date: 20110406
  Transmission Date: 20111222
  Serious: No
  Sender: FDA-Public Use
  Company Number: US-ASTRAZENECA-2011SE19371

PATIENT
  Age: 58 Year
  Sex: Female

DRUGS (2)
  1. SEROQUEL XR [Suspect]
     Indication: SCHIZOPHRENIA, PARANOID TYPE
     Route: 048
     Dates: start: 20080101
  2. SEROQUEL XR [Suspect]
     Indication: MANIA
     Route: 048
     Dates: start: 20080101

REACTIONS (3)
  - HALLUCINATION, AUDITORY [None]
  - INSOMNIA [None]
  - DRUG DOSE OMISSION [None]
